FAERS Safety Report 17313088 (Version 1)
Quarter: 2020Q1

REPORT INFORMATION
  Report Type: Spontaneous
  Country: US (occurrence: US)
  Receive Date: 20200124
  Receipt Date: 20200124
  Transmission Date: 20200409
  Serious: No
  Sender: FDA-Public Use
  Company Number: US-ASTRAZENECA-2020SE00550

PATIENT
  Age: 879 Month
  Sex: Male
  Weight: 144.9 kg

DRUGS (23)
  1. CARVEDILOL. [Concomitant]
     Active Substance: CARVEDILOL
     Route: 048
  2. GABAPENTIN. [Concomitant]
     Active Substance: GABAPENTIN
     Route: 048
  3. MIRABEGRON ER [Concomitant]
     Active Substance: MIRABEGRON
     Route: 048
  4. BASAGLAR QUICKPEN [Concomitant]
     Indication: DIABETES MELLITUS
     Dosage: GENERIC DRUG INSULIN, 50 UNIT, AT NIGHT
     Route: 058
  5. FENOFIBRATE. [Concomitant]
     Active Substance: FENOFIBRATE
     Route: 048
  6. FLUTISONE [Concomitant]
     Dosage: AT NIGHT
     Route: 045
  7. WARFARIN [Concomitant]
     Active Substance: WARFARIN
     Route: 048
  8. ATORVASTATIN [Concomitant]
     Active Substance: ATORVASTATIN
     Route: 048
  9. NITRO PILL [Concomitant]
     Indication: CHEST PAIN
     Dosage: AS REQUIRED
     Route: 048
  10. VITAMIN D [Concomitant]
     Active Substance: VITAMIN D NOS
     Route: 048
  11. BYDUREON BCISE [Suspect]
     Active Substance: EXENATIDE
     Route: 058
     Dates: start: 201909
  12. ALLOPURINOL. [Concomitant]
     Active Substance: ALLOPURINOL
     Indication: RENAL DISORDER PROPHYLAXIS
     Route: 048
  13. DILTIAZEM. [Concomitant]
     Active Substance: DILTIAZEM
     Route: 048
  14. HUMALOG [Concomitant]
     Active Substance: INSULIN LISPRO
     Indication: DIABETES MELLITUS
     Dosage: BEFORE MEALS
     Route: 058
  15. DULOXETINE. [Concomitant]
     Active Substance: DULOXETINE
     Route: 048
  16. FISH OIL [Concomitant]
     Active Substance: FISH OIL
     Route: 048
  17. HUMALOG [Concomitant]
     Active Substance: INSULIN LISPRO
     Indication: GLYCOSYLATED HAEMOGLOBIN
     Dosage: BEFORE MEALS
     Route: 058
  18. FOSINOPRIL [Concomitant]
     Active Substance: FOSINOPRIL
     Route: 048
  19. CARVEDILOL. [Concomitant]
     Active Substance: CARVEDILOL
     Route: 048
  20. CETIRIZINE [Concomitant]
     Active Substance: CETIRIZINE HYDROCHLORIDE
     Route: 048
  21. CLOPIDOGREL [Concomitant]
     Active Substance: CLOPIDOGREL BISULFATE
     Route: 048
  22. POTASSIUM CHLORIDE SA [Concomitant]
     Route: 048
  23. POTASSIUM CHLORIDE SA [Concomitant]
     Route: 048

REACTIONS (5)
  - Cardiac disorder [Unknown]
  - Device malfunction [Unknown]
  - Ear pain [Not Recovered/Not Resolved]
  - Device leakage [Unknown]
  - Wrong technique in product usage process [Unknown]

NARRATIVE: CASE EVENT DATE: 201911
